FAERS Safety Report 4507717-9 (Version None)
Quarter: 2004Q4

REPORT INFORMATION
  Report Type: 
  Country: None (occurrence: None)
  Receive Date: 20041123
  Receipt Date: 20041119
  Transmission Date: 20050328
  Serious: Yes (Other)
  Sender: FDA-Public Use
  Company Number: GB-BRISTOL-MYERS SQUIBB COMPANY-12770608

PATIENT
  Age: 12 Year
  Sex: Male
  Weight: 37 kg

DRUGS (2)
  1. SUSTIVA [Suspect]
     Route: 048
     Dates: start: 20041008, end: 20041018
  2. COMBIVIR [Concomitant]
     Dosage: DOSAGE FORM: TABLET
     Route: 048
     Dates: start: 20041008

REACTIONS (5)
  - ARTHRALGIA [None]
  - HYPERSENSITIVITY [None]
  - PYREXIA [None]
  - RASH GENERALISED [None]
  - SWELLING FACE [None]
